FAERS Safety Report 26200842 (Version 1)
Quarter: 2025Q4

REPORT INFORMATION
  Report Type: Spontaneous
  Country: IL (occurrence: IL)
  Receive Date: 20251226
  Receipt Date: 20251226
  Transmission Date: 20260117
  Serious: Yes (Other)
  Sender: AMGEN
  Company Number: IL-AMGEN-ISRSP2025250024

PATIENT

DRUGS (1)
  1. ADALIMUMAB [Suspect]
     Active Substance: ADALIMUMAB
     Indication: Colitis ulcerative
     Dosage: UNK
     Route: 065

REACTIONS (8)
  - Respiratory disorder [Unknown]
  - Loss of therapeutic response [Unknown]
  - Adverse event [Unknown]
  - Arthralgia [Unknown]
  - Bacterial infection [Unknown]
  - Viral infection [Unknown]
  - Rash [Unknown]
  - Acne [Unknown]
